FAERS Safety Report 8513641-7 (Version None)
Quarter: 2012Q3

REPORT INFORMATION
  Report Type: 
  Country: None (occurrence: None)
  Receive Date: 20120717
  Receipt Date: 20120710
  Transmission Date: 20120928
  Serious: No
  Sender: FDA-Public Use
  Company Number: US-PFIZER INC-2012150311

PATIENT
  Sex: Female
  Weight: 89.796 kg

DRUGS (7)
  1. DEPO-PROVERA [Suspect]
     Dosage: UNK, EVERY 3 MONTHS
     Dates: start: 20120101
  2. FLONASE [Concomitant]
     Indication: HYPERSENSITIVITY
     Dosage: UNK
  3. DEPO-PROVERA [Suspect]
     Indication: CONTRACEPTION
     Dosage: UNK, EVERY 3 MONTHS
     Route: 030
     Dates: start: 19980101, end: 20000101
  4. TERBINAFINE [Concomitant]
     Indication: ONYCHOMYCOSIS
     Dosage: 250, DAILY
     Dates: start: 20120301
  5. METHYLPHENIDATE [Concomitant]
     Indication: ATTENTION DEFICIT/HYPERACTIVITY DISORDER
     Dosage: 20, DAILY
  6. BUPROPION HYDROBROMIDE [Concomitant]
     Indication: DEPRESSION
     Dosage: UNK, DAILY
     Dates: start: 20120501
  7. TOPAMAX [Concomitant]
     Indication: HEADACHE
     Dosage: UNK, DAILY

REACTIONS (3)
  - HEADACHE [None]
  - CRYING [None]
  - DEPRESSION [None]
